FAERS Safety Report 8043727 (Version 2)
Quarter: 2013Q2

REPORT INFORMATION
  Report Type: Spontaneous
  Country: US (occurrence: US)
  Receive Date: 20110719
  Receipt Date: 20130516
  Transmission Date: 20140414
  Serious: Yes (Other)
  Sender: FDA-Public Use
  Company Number: US-GLAXOSMITHKLINE-A0910393A

PATIENT
  Age: 55 Year
  Sex: Male
  Weight: 159.1 kg

DRUGS (1)
  1. AVANDIA [Suspect]
     Indication: DIABETES MELLITUS
     Dosage: 4MG TWICE PER DAY
     Route: 048

REACTIONS (5)
  - Myocardial infarction [Unknown]
  - Erectile dysfunction [Unknown]
  - Oedema [Unknown]
  - Angioplasty [Unknown]
  - Angina unstable [Unknown]
